FAERS Safety Report 5455394-5 (Version None)
Quarter: 2007Q3

REPORT INFORMATION
  Report Type: 
  Country: None (occurrence: None)
  Receive Date: 20070918
  Receipt Date: 20061031
  Transmission Date: 20080115
  Serious: No
  Sender: FDA-Public Use
  Company Number: US-ASTRAZENECA-2006UW20950

PATIENT
  Age: 31 Year
  Sex: Female
  Weight: 77.1 kg

DRUGS (5)
  1. SEROQUEL [Suspect]
     Indication: BIPOLAR DISORDER
     Route: 048
  2. INSULIN [Concomitant]
  3. ZOLOFT [Concomitant]
  4. ALLERGY MEDICATION [Concomitant]
  5. VITAMINS [Concomitant]

REACTIONS (5)
  - AGGRESSION [None]
  - ANXIETY [None]
  - BLOOD PRESSURE ABNORMAL [None]
  - CRYING [None]
  - TREMOR [None]
